FAERS Safety Report 8163312-4 (Version None)
Quarter: 2012Q1

REPORT INFORMATION
  Report Type: 
  Country: None (occurrence: None)
  Receive Date: 20120224
  Receipt Date: 20110719
  Transmission Date: 20120608
  Serious: No
  Sender: FDA-Public Use
  Company Number: US-PFIZER INC-K201100837

PATIENT
  Age: 88 Year
  Sex: Female

DRUGS (2)
  1. FLECTOR [Suspect]
     Indication: BACK PAIN
  2. FLECTOR [Suspect]
     Indication: ARTHRALGIA
     Dosage: UNK
     Route: 061

REACTIONS (2)
  - FATIGUE [None]
  - ASTHENIA [None]
